FAERS Safety Report 4652895-4 (Version None)
Quarter: 2005Q2

REPORT INFORMATION
  Report Type: 
  Country: None (occurrence: None)
  Receive Date: 20050503
  Receipt Date: 20050414
  Transmission Date: 20051028
  Serious: Yes (Hospitalization)
  Sender: FDA-Public Use
  Company Number: B0378357A

PATIENT
  Age: 24 Year
  Sex: Female
  Weight: 47.8998 kg

DRUGS (2)
  1. ZYBAN [Suspect]
     Indication: EX-SMOKER
     Dosage: 300 MG/ PER DAY / ORAL
     Route: 048
  2. BUDESONIDE [Concomitant]

REACTIONS (2)
  - CONVULSION [None]
  - SINUS TACHYCARDIA [None]
